FAERS Safety Report 8533561-1 (Version None)
Quarter: 2012Q2

REPORT INFORMATION
  Report Type: 
  Country: None (occurrence: None)
  Receive Date: 20120412
  Receipt Date: 20100817
  Transmission Date: 20120825
  Serious: Yes (Other)
  Sender: FDA-Public Use
  Company Number: PHHY2010US52212

PATIENT
  Age: 53 Year
  Sex: Male
  Weight: 147 kg

DRUGS (1)
  1. CLOZARIL [Suspect]
     Indication: PSYCHOTIC DISORDER
     Dosage: 100 MG, BID, ORAL
     Route: 048
     Dates: start: 20100204

REACTIONS (1)
  - NEUTROPHIL COUNT DECREASED [None]
